FAERS Safety Report 10790449 (Version 1)
Quarter: 2015Q1

REPORT INFORMATION
  Report Type: Spontaneous
  Country: US (occurrence: US)
  Receive Date: 20150212
  Receipt Date: 20150212
  Transmission Date: 20150721
  Serious: Yes (Death, Life-Threatening, Hospitalization, Other)
  Sender: FDA-Public Use
  Company Number: US-PFIZER INC-2015053691

PATIENT
  Age: 55 Year
  Sex: Male

DRUGS (10)
  1. CEREBYX [Suspect]
     Active Substance: FOSPHENYTOIN SODIUM
     Dosage: 300 MG, DAILY
     Route: 042
     Dates: start: 20140206, end: 20140209
  2. CEREBYX [Suspect]
     Active Substance: FOSPHENYTOIN SODIUM
     Dosage: 200 MG, DAILY
     Route: 042
     Dates: start: 20140210, end: 20140211
  3. CEREBYX [Suspect]
     Active Substance: FOSPHENYTOIN SODIUM
     Dosage: 400 MG, UNK
     Route: 042
     Dates: start: 20140201
  4. CEREBYX [Suspect]
     Active Substance: FOSPHENYTOIN SODIUM
     Dosage: 200 MG, UNK
     Route: 042
     Dates: start: 20140202
  5. CEREBYX [Suspect]
     Active Substance: FOSPHENYTOIN SODIUM
     Dosage: 200 MG, UNK
     Route: 042
     Dates: start: 20140131
  6. CEREBYX [Suspect]
     Active Substance: FOSPHENYTOIN SODIUM
     Indication: SEIZURE
     Dosage: 2000 MG, UNK
     Route: 042
     Dates: start: 20140129
  7. CEREBYX [Suspect]
     Active Substance: FOSPHENYTOIN SODIUM
     Dosage: 400 MG, UNK
     Route: 042
     Dates: start: 20140203
  8. CEREBYX [Suspect]
     Active Substance: FOSPHENYTOIN SODIUM
     Dosage: 200 MG, UNK
     Route: 042
     Dates: start: 20140204
  9. CEREBYX [Suspect]
     Active Substance: FOSPHENYTOIN SODIUM
     Dosage: 1700 MG, UNK
     Route: 042
     Dates: start: 20140130
  10. CEREBYX [Suspect]
     Active Substance: FOSPHENYTOIN SODIUM
     Dosage: 400 MG, UNK
     Route: 042
     Dates: start: 20140205

REACTIONS (7)
  - Acute kidney injury [Fatal]
  - Anxiety [Fatal]
  - Sepsis [Fatal]
  - Stevens-Johnson syndrome [Fatal]
  - Hypotension [Fatal]
  - Acute respiratory failure [Fatal]
  - Depression [Fatal]

NARRATIVE: CASE EVENT DATE: 2014
